FAERS Safety Report 6656539-1 (Version None)
Quarter: 2010Q2

REPORT INFORMATION
  Report Type: 
  Country: None (occurrence: None)
  Receive Date: 20100329
  Receipt Date: 20100318
  Transmission Date: 20101027
  Serious: Yes (Other)
  Sender: FDA-Public Use
  Company Number: PHHY2010BR16930

PATIENT
  Sex: Male

DRUGS (5)
  1. EXFORGE [Suspect]
     Indication: HYPERTENSION
     Dosage: ONE TABLET (320/5 MG) DAILY
     Route: 048
  2. EXFORGE [Suspect]
     Dosage: ONE TABLET (160/5 MG) DAILY
     Route: 048
  3. DIOVAN [Suspect]
     Indication: HYPERTENSION
  4. INDAPAMIDE [Concomitant]
     Indication: POLYURIA
     Dosage: ONE TABLET EVERY OTHER DAY
     Route: 048
  5. INSULIN [Concomitant]
     Indication: DIABETES MELLITUS
     Dosage: ONCE DAILY
     Route: 058

REACTIONS (4)
  - BLOOD PRESSURE DECREASED [None]
  - FALL [None]
  - HIP FRACTURE [None]
  - PROSTATIC OBSTRUCTION [None]
